FAERS Safety Report 19941695 (Version 1)
Quarter: 2021Q4

REPORT INFORMATION
  Report Type: Other
  Country: IN (occurrence: IN)
  Receive Date: 20211011
  Receipt Date: 20211011
  Transmission Date: 20220303
  Serious: Yes (Other)
  Sender: FDA-Public Use
  Company Number: IN-ROCHE-2928447

PATIENT

DRUGS (11)
  1. MYCOPHENOLATE MOFETIL [Suspect]
     Active Substance: MYCOPHENOLATE MOFETIL
     Indication: Myositis
     Dosage: 2000MG/DAY
     Route: 065
  2. METHOTREXATE [Suspect]
     Active Substance: METHOTREXATE
     Indication: Myositis
     Dosage: 15.9+/- 4.4 MG/WEEK AND  MTX: 43 (51.2%) RECEIVED PARENTERAL MTX, REST RECEIVED ORAL MTX
     Route: 042
  3. MYCOPHENOLATE SODIUM [Suspect]
     Active Substance: MYCOPHENOLATE SODIUM
     Indication: Myositis
     Dosage: 1440MG/DAY
     Route: 065
  4. AZATHIOPRINE [Suspect]
     Active Substance: AZATHIOPRINE
     Indication: Myositis
     Dosage: 93.3 +/-14.8 MG/DAY
     Route: 065
  5. CYCLOPHOSPHAMIDE [Suspect]
     Active Substance: CYCLOPHOSPHAMIDE
     Indication: Myositis
     Dosage: 900+/-173.2 MG/ MONTH;
     Route: 065
  6. CYCLOSPORINE [Suspect]
     Active Substance: CYCLOSPORINE
     Indication: Myositis
     Dosage: 150MG/DAY
     Route: 065
  7. METHYLPREDNISOLONE [Suspect]
     Active Substance: METHYLPREDNISOLONE
     Indication: Myositis
     Dosage: 15M/KG/ DAY GIVEN INTRAVENOUSLY FOR 3 DAYS; DEXAMETHASONE PULSE: DEXAMETHASONE 40MG GIVEN ONCE DAILY
     Route: 042
  8. RITUXIMAB [Suspect]
     Active Substance: RITUXIMAB
     Indication: Myositis
     Dosage: 2 DOSES OF?1000MG 2 WEEKS APAR
     Route: 042
  9. HYDROXYCHLOROQUINE [Concomitant]
     Active Substance: HYDROXYCHLOROQUINE
  10. HUMAN IMMUNOGLOBULIN G [Concomitant]
     Active Substance: HUMAN IMMUNOGLOBULIN G
     Dosage: 2GM/KG GIVEN OVER 4-5?DAYS
     Route: 042
  11. COTRIMOXAZOLE [Concomitant]
     Active Substance: SULFAMETHOXAZOLE\TRIMETHOPRIM

REACTIONS (18)
  - Cytopenia [Unknown]
  - Lymph node tuberculosis [Unknown]
  - Lymphoma [Unknown]
  - Arthritis bacterial [Unknown]
  - Typhoid fever [Unknown]
  - Endocarditis [Unknown]
  - Atypical mycobacterial infection [Unknown]
  - Mycobacterial infection [Unknown]
  - Pyelonephritis [Unknown]
  - Pulmonary tuberculosis [Unknown]
  - Nocardiosis [Unknown]
  - Lymph node tuberculosis [Unknown]
  - Bacterial infection [Unknown]
  - Herpes zoster [Unknown]
  - Renal function test abnormal [Unknown]
  - Gastrointestinal disorder [Unknown]
  - Transaminases increased [Unknown]
  - Neoplasm [Unknown]
